FAERS Safety Report 5738760-X (Version None)
Quarter: 2008Q2

REPORT INFORMATION
  Report Type: 
  Country: None (occurrence: None)
  Receive Date: 20080515
  Receipt Date: 20080131
  Transmission Date: 20081010
  Serious: No
  Sender: FDA-Public Use
  Company Number: A0706658A

PATIENT
  Age: 73 Year
  Sex: Male

DRUGS (13)
  1. VERAMYST [Suspect]
     Dosage: 2SPR PER DAY
     Route: 045
     Dates: start: 20071101, end: 20080101
  2. CORTISONE INJECTIONS [Concomitant]
  3. LEXAPRO [Concomitant]
  4. AMBIEN [Concomitant]
  5. ASPIRIN [Concomitant]
  6. ARICEPT [Concomitant]
  7. OXCARBAZEPINE [Concomitant]
  8. MULTI-VITAMIN [Concomitant]
  9. SIMVASTATIN [Concomitant]
  10. HYDROCODONE BITARTRATE [Concomitant]
  11. BACLOFEN [Concomitant]
  12. NAPROXEN [Concomitant]
  13. OMEPRAZOLE [Concomitant]

REACTIONS (3)
  - ANOSMIA [None]
  - EPISTAXIS [None]
  - NASAL ULCER [None]
